FAERS Safety Report 6144008-7 (Version None)
Quarter: 2009Q2

REPORT INFORMATION
  Report Type: 
  Country: None (occurrence: None)
  Receive Date: 20090406
  Receipt Date: 20090327
  Transmission Date: 20091009
  Serious: Yes (Hospitalization)
  Sender: FDA-Public Use
  Company Number: BR-BAYER-200914383LA

PATIENT
  Age: 43 Year
  Sex: Female

DRUGS (4)
  1. BETAFERON [Suspect]
     Indication: SECONDARY PROGRESSIVE MULTIPLE SCLEROSIS
     Route: 058
     Dates: start: 20070301
  2. DIAMOX [Concomitant]
     Indication: HYDROCEPHALUS
     Route: 048
     Dates: start: 19990101
  3. ARADOIS H [Concomitant]
     Indication: HYPERTENSION
     Dosage: TOTAL DAILY DOSE: 300 MG  UNIT DOSE: 100 MG
     Route: 048
     Dates: start: 20030101
  4. FLUOXETINE [Concomitant]
     Indication: ANXIETY
     Dosage: TOTAL DAILY DOSE: 20 MG  UNIT DOSE: 20 MG
     Route: 048
     Dates: start: 20090101

REACTIONS (5)
  - GAIT DISTURBANCE [None]
  - HEADACHE [None]
  - INJECTION SITE PAIN [None]
  - MULTIPLE SCLEROSIS [None]
  - PAIN IN EXTREMITY [None]
